FAERS Safety Report 8903077 (Version 1)
Quarter: 2012Q4

REPORT INFORMATION
  Report Type: 
  Country: FR (occurrence: FR)
  Receive Date: 20121113
  Receipt Date: 20121113
  Transmission Date: 20130627
  Serious: Yes (Death)
  Sender: FDA-Public Use
  Company Number: FR-ASTRAZENECA-2012SE84968

PATIENT
  Age: 25932 Day
  Sex: Female

DRUGS (2)
  1. XEROQUEL [Suspect]
     Indication: BIPOLAR DISORDER
     Dosage: DOSE PROGRESSIVELY INCREASED FROM 50 MG/DAY TO 150 MG/DAY
     Route: 048
     Dates: start: 201207
  2. EFFEXOR [Concomitant]
     Route: 048

REACTIONS (1)
  - Completed suicide [Fatal]
